FAERS Safety Report 19145324 (Version 1)
Quarter: 2021Q2

REPORT INFORMATION
  Report Type: Spontaneous
  Country: US (occurrence: US)
  Receive Date: 20210416
  Receipt Date: 20210416
  Transmission Date: 20210717
  Serious: Yes (Other)
  Sender: FDA-Public Use
  Company Number: None

PATIENT
  Age: 86 Year
  Sex: Male

DRUGS (12)
  1. ALLOPURINOL. [Concomitant]
     Active Substance: ALLOPURINOL
  2. FUROSEMIDE. [Concomitant]
     Active Substance: FUROSEMIDE
  3. METHYLPRED [Concomitant]
     Active Substance: METHYLPREDNISOLONE
  4. OXYBUTYNIN. [Concomitant]
     Active Substance: OXYBUTYNIN CHLORIDE
  5. PANTOPRAZOLE [Concomitant]
     Active Substance: PANTOPRAZOLE
  6. TAMSULOSIN [Concomitant]
     Active Substance: TAMSULOSIN
  7. PREDNISONE. [Concomitant]
     Active Substance: PREDNISONE
  8. DOXYCYCL HYC [Concomitant]
  9. DOFETILIDE. [Suspect]
     Active Substance: DOFETILIDE
     Indication: PRODUCT USED FOR UNKNOWN INDICATION
     Route: 048
     Dates: start: 20210129
  10. FLAVOXATE [Concomitant]
     Active Substance: FLAVOXATE
  11. TADALAFIL. [Concomitant]
     Active Substance: TADALAFIL
  12. ATORVASTATIN [Concomitant]
     Active Substance: ATORVASTATIN

REACTIONS (1)
  - Benign neoplasm of bladder [None]

NARRATIVE: CASE EVENT DATE: 20210310
